FAERS Safety Report 6188926-2 (Version None)
Quarter: 2009Q2

REPORT INFORMATION
  Report Type: 
  Country: None (occurrence: None)
  Receive Date: 20090513
  Receipt Date: 20090511
  Transmission Date: 20091009
  Serious: Yes (Death, Hospitalization)
  Sender: FDA-Public Use
  Company Number: PHHY2009GB16421

PATIENT
  Sex: Male

DRUGS (3)
  1. CLOZARIL [Suspect]
     Indication: SCHIZOPHRENIA
     Dosage: 200 MG, BID
     Route: 048
     Dates: start: 20050531
  2. CLOZARIL [Suspect]
     Indication: SCHIZOAFFECTIVE DISORDER
  3. VALPROATE SODIUM [Concomitant]
     Indication: SCHIZOAFFECTIVE DISORDER
     Dosage: 1200 MG/DAY
     Route: 048
     Dates: start: 20050101

REACTIONS (3)
  - FALL [None]
  - MALAISE [None]
  - MYOCARDIAL INFARCTION [None]
